FAERS Safety Report 5578319-0 (Version None)
Quarter: 2007Q4

REPORT INFORMATION
  Report Type: 
  Country: None (occurrence: None)
  Receive Date: 20071130
  Receipt Date: 20070629
  Transmission Date: 20080405
  Serious: No
  Sender: FDA-Public Use
  Company Number: USA200707000988

PATIENT
  Age: 63 Year
  Sex: Male

DRUGS (5)
  1. BYETTA [Suspect]
     Indication: TYPE 2 DIABETES MELLITUS
     Dosage: 5 UG 2/D, SUBCUTANEOUS
     Route: 058
     Dates: start: 20070501, end: 20070627
  2. BYETTA [Suspect]
     Indication: TYPE 2 DIABETES MELLITUS
     Dosage: 5 UG 2/D, SUBCUTANEOUS
     Route: 058
     Dates: start: 20070628
  3. ACTOS/UNK (PIOGLITAZONE HYDROCHLORIDE) [Concomitant]
  4. GLUCOPHAGE/USA/ (METFORMIN HYDROCHLORIDE) UNK TO UNK [Concomitant]
  5. AMARYL (GLYMEPIRIDE) UNK TO UNK [Concomitant]

REACTIONS (2)
  - BLOOD GLUCOSE DECREASED [None]
  - BLOOD GLUCOSE INCREASED [None]
